FAERS Safety Report 23933072 (Version 4)
Quarter: 2024Q2

REPORT INFORMATION
  Report Type: Report from Study
  Country: DE (occurrence: DE)
  Receive Date: 20240603
  Receipt Date: 20240621
  Transmission Date: 20240715
  Serious: Yes (Other)
  Sender: FDA-Public Use
  Company Number: DE-UCBSA-2024018140

PATIENT
  Sex: Female
  Weight: 72 kg

DRUGS (3)
  1. BIMEKIZUMAB [Suspect]
     Active Substance: BIMEKIZUMAB
     Indication: Psoriatic arthropathy
     Dosage: 160 MILLIGRAM, EV 4 WEEKS
     Route: 058
     Dates: start: 20240306, end: 20240403
  2. VERAPAMIL [Concomitant]
     Active Substance: VERAPAMIL HYDROCHLORIDE
     Indication: Arrhythmia
     Dosage: 120 MILLIGRAM, 2X/DAY (BID)
     Route: 048
     Dates: start: 20160105
  3. GABAPENTIN [Concomitant]
     Active Substance: GABAPENTIN
     Indication: Polyneuropathy
     Dosage: 1 DOSAGE FORM, 2X/DAY (BID)
     Route: 048
     Dates: start: 20230301

REACTIONS (4)
  - Oesophageal candidiasis [Recovered/Resolved]
  - Pruritus [Recovered/Resolved]
  - Injection site erythema [Recovered/Resolved]
  - Hypersensitivity [Not Recovered/Not Resolved]

NARRATIVE: CASE EVENT DATE: 20240101
